FAERS Safety Report 24141101 (Version 1)
Quarter: 2024Q3

REPORT INFORMATION
  Report Type: Spontaneous
  Country: ZA (occurrence: ZA)
  Receive Date: 20240726
  Receipt Date: 20240726
  Transmission Date: 20241017
  Serious: Yes (Hospitalization)
  Sender: BAYER
  Company Number: ZA-BAYER-2024A106457

PATIENT
  Age: 25 Year
  Sex: Female

DRUGS (29)
  1. DIENOGEST\ESTRADIOL VALERATE [Suspect]
     Active Substance: DIENOGEST\ESTRADIOL VALERATE
     Indication: Contraception
     Dosage: 1 DF, QD
     Route: 048
  2. FEMODENE ED [Concomitant]
     Indication: Contraception
     Dosage: 1 DF, QD
     Route: 048
  3. THEOPHYLLINE ANHYDROUS [Concomitant]
     Active Substance: THEOPHYLLINE ANHYDROUS
     Indication: Bronchospasm
     Dosage: 1 DF, BID
     Route: 048
  4. IVY EXTRACT [Concomitant]
     Active Substance: IVY EXTRACT
     Dosage: 2 DF, TID
     Route: 048
  5. Sinutab sinus [Concomitant]
     Dosage: 1 DF, QD
     Route: 048
  6. FLUTICASONE FUROATE [Concomitant]
     Active Substance: FLUTICASONE FUROATE
     Indication: Hypersensitivity
     Dosage: 27.5 ?G, QD
     Route: 045
  7. SALEX [Concomitant]
     Active Substance: SALICYLIC ACID
     Dosage: UNK UNK, QID
     Route: 045
  8. FLUTICASONE PROPIONATE\SALMETEROL XINAFOATE [Concomitant]
     Active Substance: FLUTICASONE PROPIONATE\SALMETEROL XINAFOATE
     Indication: Asthma
     Dosage: 1 PUFF(S), QD
     Route: 055
  9. DICLOFENAC DIETHYLAMINE [Concomitant]
     Active Substance: DICLOFENAC DIETHYLAMINE
     Dosage: 1.16 G, BID
     Route: 061
  10. LORNOXICAM [Concomitant]
     Active Substance: LORNOXICAM
     Dosage: 1 DF, QD
     Route: 048
  11. DESLORATADINE [Concomitant]
     Active Substance: DESLORATADINE
     Indication: Hypersensitivity
     Dosage: 1 DF, QD
     Route: 048
  12. Topraz [Concomitant]
     Indication: Asthma
     Dosage: 1 DF, QD
     Route: 048
  13. PREDNISONE [Concomitant]
     Active Substance: PREDNISONE
     Dosage: 4 DF, QD
     Route: 048
  14. Broncol [Concomitant]
     Dosage: 10 ML, TID
     Route: 048
  15. STREPSILS INTENSIVE [Concomitant]
     Dosage: 1 DF, QID
     Route: 048
  16. ORALAC [Concomitant]
     Dosage: 0.3 MG, TID
     Route: 048
  17. EXPECTALIN WITH CODEINE [Concomitant]
     Route: 048
  18. Xtreme c [Concomitant]
     Route: 048
  19. FENIVIR [Concomitant]
     Dosage: 0.01 G, TID
     Route: 061
  20. CLONIDINE HYDROCHLORIDE [Concomitant]
     Active Substance: CLONIDINE HYDROCHLORIDE
     Indication: Migraine prophylaxis
     Dosage: 1 DF, QD
     Route: 048
  21. NEUROBION [Concomitant]
     Active Substance: CYANOCOBALAMIN\PYRIDOXINE\THIAMINE
     Dosage: 1 DF, QD
     Route: 048
  22. Autrin [Concomitant]
     Dosage: 1 DF, QD
     Route: 048
  23. ZINC [Concomitant]
     Active Substance: ZINC
     Dosage: 1 DF, QD
     Route: 048
  24. FLUTICASONE PROPIONATE [Concomitant]
     Active Substance: FLUTICASONE PROPIONATE
     Indication: Hypersensitivity
     Dosage: 50 ?G
     Route: 045
  25. ADCO DOL [Concomitant]
     Dosage: UNK UNK, TID
     Route: 048
  26. Sinustat [Concomitant]
     Dosage: 1 DF, TID
     Route: 048
  27. ACETAMINOPHEN\CAFFEINE\CODEINE\DOXYLAMINE [Concomitant]
     Active Substance: ACETAMINOPHEN\CAFFEINE\CODEINE\DOXYLAMINE
     Dosage: 2 DF, TID
     Route: 048
  28. MUPIROCIN [Concomitant]
     Active Substance: MUPIROCIN
     Dosage: 20 MG, BID
     Route: 061
  29. IBUPAIN [Concomitant]
     Dosage: 1 DF, TID
     Route: 048

REACTIONS (3)
  - Pneumonia [None]
  - Viral infection [None]
  - Blood iron decreased [None]
